FAERS Safety Report 9477296 (Version 2)
Quarter: 2013Q3

REPORT INFORMATION
  Report Type: Report from Study
  Country: US (occurrence: US)
  Receive Date: 20130826
  Receipt Date: 20130826
  Transmission Date: 20140515
  Serious: Yes (Disabling)
  Sender: FDA-Public Use
  Company Number: US-ROCHE-1163034

PATIENT
  Age: 57 Year
  Sex: Female
  Weight: 45.4 kg

DRUGS (18)
  1. CELLCEPT [Suspect]
     Indication: LUPUS VASCULITIS
     Dosage: TAKES ONE IN AM, 2 IN PM
     Route: 048
  2. RITUXAN [Suspect]
     Indication: VASCULITIS
     Dosage: EVERY 3-4 MONTHS
     Route: 042
  3. GABAPENTIN [Concomitant]
     Dosage: 3-4 TIMES A DAY
     Route: 048
  4. PLAVIX [Concomitant]
     Route: 048
  5. OXYBUTYNIN [Concomitant]
     Route: 065
  6. ASA [Concomitant]
     Route: 065
  7. LISINOPRIL [Concomitant]
     Route: 065
  8. LASIX [Concomitant]
     Route: 065
  9. DEXILANT [Concomitant]
     Route: 065
  10. BENICAR [Concomitant]
     Route: 065
  11. MORPHINE [Concomitant]
     Route: 065
  12. MORPHINE [Concomitant]
     Dosage: CONTROL RELEASE
     Route: 048
  13. CYMBALTA [Concomitant]
     Route: 065
  14. NEURONTIN (UNITED STATES) [Concomitant]
  15. OXYBUTYNIN CHLORIDE [Concomitant]
     Route: 054
  16. LEVETIRACETAM [Concomitant]
     Route: 048
  17. ASPIRIN [Concomitant]
     Route: 048
  18. B-COMPLEX VITAMINS [Concomitant]

REACTIONS (32)
  - Influenza [Unknown]
  - Malaise [Unknown]
  - Cough [Recovered/Resolved]
  - Rhinorrhoea [Recovered/Resolved]
  - Pain in extremity [Unknown]
  - Peripheral paralysis [Unknown]
  - Pain [Not Recovered/Not Resolved]
  - Syncope [Not Recovered/Not Resolved]
  - Malaise [Unknown]
  - Headache [Unknown]
  - Fatigue [Unknown]
  - Decreased appetite [Unknown]
  - Dyspnoea [Unknown]
  - Chest pain [Unknown]
  - Dysuria [Unknown]
  - Balance disorder [Unknown]
  - Muscle spasms [Unknown]
  - Hypoaesthesia [Unknown]
  - Syncope [Unknown]
  - Arthralgia [Unknown]
  - Hypoaesthesia [Unknown]
  - Back pain [Unknown]
  - Anxiety [Unknown]
  - Mental impairment [Unknown]
  - Depression [Unknown]
  - Memory impairment [Unknown]
  - Insomnia [Unknown]
  - Sexual dysfunction [Unknown]
  - Disturbance in social behaviour [Unknown]
  - Loss of consciousness [Unknown]
  - Paraesthesia [Unknown]
  - Paralysis [Not Recovered/Not Resolved]
